FAERS Safety Report 19734326 (Version 3)
Quarter: 2021Q3

REPORT INFORMATION
  Report Type: Spontaneous
  Country: AR (occurrence: AR)
  Receive Date: 20210823
  Receipt Date: 20210909
  Transmission Date: 20211014
  Serious: Yes (Other)
  Sender: FDA-Public Use
  Company Number: AR-AMGEN-ARGSP2021127923

PATIENT
  Age: 75 Year
  Sex: Female

DRUGS (1)
  1. ENBREL [Suspect]
     Active Substance: ETANERCEPT
     Indication: RHEUMATOID ARTHRITIS
     Dosage: 50 MG, WEEKLY
     Route: 065
     Dates: start: 20161124, end: 202103

REACTIONS (4)
  - Accident [Not Recovered/Not Resolved]
  - Product dose omission issue [Unknown]
  - Dysstasia [Not Recovered/Not Resolved]
  - Fracture [Not Recovered/Not Resolved]

NARRATIVE: CASE EVENT DATE: 202106
